FAERS Safety Report 4841344-9 (Version None)
Quarter: 2005Q4

REPORT INFORMATION
  Report Type: 
  Country: None (occurrence: None)
  Receive Date: 20051130
  Receipt Date: 20051011
  Transmission Date: 20060501
  Serious: Yes (Life-Threatening, Hospitalization)
  Sender: FDA-Public Use
  Company Number: DE-GLAXOSMITHKLINE-D0047699A

PATIENT
  Age: 68 Year
  Sex: Male
  Weight: 78 kg

DRUGS (5)
  1. ZOVIRAX [Suspect]
     Dosage: 750MG THREE TIMES PER DAY
     Route: 042
     Dates: start: 20050921, end: 20050925
  2. CEFTRIAXON [Concomitant]
     Dosage: 2G PER DAY
     Route: 042
     Dates: start: 20050921, end: 20050926
  3. METFORMIN [Concomitant]
     Indication: DIABETES MELLITUS
     Dosage: 1000MG TWICE PER DAY
     Route: 065
     Dates: end: 20050925
  4. SIMVASTATIN [Concomitant]
     Dosage: 40MG PER DAY
     Route: 065
     Dates: end: 20050925
  5. COVERSUM [Concomitant]
     Dosage: 25MG PER DAY
     Route: 065
     Dates: end: 20050925

REACTIONS (7)
  - BLOOD CREATININE INCREASED [None]
  - COMA [None]
  - ENCEPHALOPATHY [None]
  - PSYCHOTIC DISORDER [None]
  - RENAL FAILURE ACUTE [None]
  - STATUS EPILEPTICUS [None]
  - VASCULITIS CEREBRAL [None]
